FAERS Safety Report 16093058 (Version 1)
Quarter: 2019Q1

REPORT INFORMATION
  Report Type: Spontaneous
  Country: CA (occurrence: CA)
  Receive Date: 20190320
  Receipt Date: 20190320
  Transmission Date: 20190418
  Serious: Yes (Other)
  Sender: FDA-Public Use
  Company Number: CA-009507513-1903CAN006459

PATIENT
  Age: 26 Year
  Sex: Female

DRUGS (15)
  1. TOPOTECAN HYDROCHLORIDE. [Suspect]
     Active Substance: TOPOTECAN HYDROCHLORIDE
     Indication: PHAEOCHROMOCYTOMA MALIGNANT
  2. VANDETANIB. [Suspect]
     Active Substance: VANDETANIB
     Indication: PARAGANGLION NEOPLASM MALIGNANT
     Route: 065
  3. PROCYTOX [Suspect]
     Active Substance: CYCLOPHOSPHAMIDE
     Indication: PHAEOCHROMOCYTOMA MALIGNANT
  4. TEMODAL [Suspect]
     Active Substance: TEMOZOLOMIDE
     Indication: PARAGANGLION NEOPLASM MALIGNANT
     Route: 065
  5. PROCYTOX [Suspect]
     Active Substance: CYCLOPHOSPHAMIDE
     Indication: PHAEOCHROMOCYTOMA MALIGNANT
  6. PROCYTOX [Suspect]
     Active Substance: CYCLOPHOSPHAMIDE
     Indication: PARAGANGLION NEOPLASM MALIGNANT
  7. UROMITEXAN [Suspect]
     Active Substance: MESNA
     Indication: PARAGANGLION NEOPLASM MALIGNANT
     Route: 065
  8. TEMODAL [Suspect]
     Active Substance: TEMOZOLOMIDE
     Indication: PHAEOCHROMOCYTOMA MALIGNANT
  9. SUNITINIB MALATE. [Suspect]
     Active Substance: SUNITINIB MALATE
     Indication: PARAGANGLION NEOPLASM MALIGNANT
     Route: 065
  10. TOPOTECAN HYDROCHLORIDE. [Suspect]
     Active Substance: TOPOTECAN HYDROCHLORIDE
     Indication: PARAGANGLION NEOPLASM MALIGNANT
     Route: 065
  11. VANDETANIB. [Suspect]
     Active Substance: VANDETANIB
     Indication: PHAEOCHROMOCYTOMA MALIGNANT
  12. AFINITOR [Suspect]
     Active Substance: EVEROLIMUS
     Indication: PARAGANGLION NEOPLASM MALIGNANT
     Route: 065
  13. PROCYTOX [Suspect]
     Active Substance: CYCLOPHOSPHAMIDE
     Indication: PARAGANGLION NEOPLASM MALIGNANT
     Route: 065
  14. AFINITOR [Suspect]
     Active Substance: EVEROLIMUS
     Indication: PHAEOCHROMOCYTOMA MALIGNANT
  15. UROMITEXAN [Suspect]
     Active Substance: MESNA
     Indication: PHAEOCHROMOCYTOMA MALIGNANT

REACTIONS (6)
  - Headache [Recovering/Resolving]
  - Insomnia [Recovering/Resolving]
  - Metastases to liver [Recovering/Resolving]
  - Metastases to bone [Recovering/Resolving]
  - Metastases to central nervous system [Recovering/Resolving]
  - Pancytopenia [Recovering/Resolving]
